FAERS Safety Report 4276404-7 (Version None)
Quarter: 2004Q1

REPORT INFORMATION
  Report Type: 
  Country: None (occurrence: None)
  Receive Date: 20040116
  Receipt Date: 20040107
  Transmission Date: 20041129
  Serious: Yes (Other)
  Sender: FDA-Public Use
  Company Number: BE-JNJFOC-20040100382

PATIENT
  Age: 22 Year
  Sex: Female

DRUGS (1)
  1. PROPULSID [Suspect]
     Indication: IMPAIRED GASTRIC EMPTYING
     Dosage: 10 MG, 4 IN 1 DAY, UNKNOWN
     Dates: start: 20030829

REACTIONS (2)
  - HYPERVENTILATION [None]
  - SINUS TACHYCARDIA [None]
